FAERS Safety Report 5013624-8 (Version None)
Quarter: 2006Q2

REPORT INFORMATION
  Report Type: 
  Country: None (occurrence: None)
  Receive Date: 20060530
  Receipt Date: 20060329
  Transmission Date: 20061013
  Serious: Yes (Hospitalization)
  Sender: FDA-Public Use
  Company Number: JP-JPN-A200601086

PATIENT
  Age: 88 Year
  Sex: Male
  Weight: 35 kg

DRUGS (1)
  1. VALTREX [Suspect]
     Indication: HERPES ZOSTER
     Dosage: 1000MG THREE TIMES PER DAY
     Route: 048
     Dates: start: 20060320, end: 20060322

REACTIONS (8)
  - ABNORMAL BEHAVIOUR [None]
  - DEPRESSED LEVEL OF CONSCIOUSNESS [None]
  - ENCEPHALOPATHY [None]
  - HALLUCINATION, VISUAL [None]
  - OLIGURIA [None]
  - RENAL FAILURE ACUTE [None]
  - SPEECH DISORDER [None]
  - VOMITING [None]
